FAERS Safety Report 8205972-5 (Version None)
Quarter: 2012Q1

REPORT INFORMATION
  Report Type: 
  Country: None (occurrence: None)
  Receive Date: 20120313
  Receipt Date: 20120305
  Transmission Date: 20120608
  Serious: Yes (Hospitalization)
  Sender: FDA-Public Use
  Company Number: US-JNJFOC-20120302669

PATIENT
  Sex: Male
  Weight: 96.16 kg

DRUGS (3)
  1. STELARA [Suspect]
     Route: 058
     Dates: start: 20110901, end: 20120201
  2. ADVAIR DISKUS 100/50 [Concomitant]
     Indication: ASTHMA
  3. STELARA [Suspect]
     Indication: PSORIASIS
     Route: 058
     Dates: start: 20120201

REACTIONS (5)
  - INFECTION [None]
  - WHITE BLOOD CELL COUNT INCREASED [None]
  - URTICARIA [None]
  - BLOOD POTASSIUM DECREASED [None]
  - THERAPEUTIC RESPONSE DECREASED [None]
